FAERS Safety Report 9463500 (Version 2)
Quarter: 2013Q3

REPORT INFORMATION
  Report Type: Spontaneous
  Country: JP (occurrence: JP)
  Receive Date: 20130819
  Receipt Date: 20130819
  Transmission Date: 20140515
  Serious: Yes (Other)
  Sender: FDA-Public Use
  Company Number: JP-ROCHE-1140584

PATIENT
  Age: 76 Year
  Sex: Female
  Weight: 62 kg

DRUGS (3)
  1. AVASTIN [Suspect]
     Indication: COLON CANCER METASTATIC
     Route: 041
     Dates: start: 20110118, end: 20110118
  2. XELODA [Suspect]
     Indication: COLON CANCER METASTATIC
     Dosage: 14 TIMES/TWO WEEKS
     Route: 048
     Dates: start: 20110118, end: 20110207
  3. ELPLAT [Suspect]
     Indication: COLON CANCER METASTATIC
     Dosage: DOSAGE IS UNCERTAIN.
     Route: 041
     Dates: start: 20110118, end: 20110118

REACTIONS (2)
  - Hypoaesthesia [Recovering/Resolving]
  - Headache [Recovering/Resolving]
